FAERS Safety Report 6092053-2 (Version None)
Quarter: 2009Q1

REPORT INFORMATION
  Report Type: 
  Country: None (occurrence: None)
  Receive Date: 20090225
  Receipt Date: 20090219
  Transmission Date: 20090719
  Serious: Yes (Hospitalization)
  Sender: FDA-Public Use
  Company Number: US-BIOGENIDEC-2008BI008177

PATIENT
  Age: 53 Year
  Sex: Male
  Weight: 90 kg

DRUGS (5)
  1. TYSABRI [Suspect]
     Indication: MULTIPLE SCLEROSIS
     Route: 042
     Dates: start: 20070425, end: 20080524
  2. ZOLOFT [Concomitant]
     Indication: DEPRESSION
     Dates: start: 20080101
  3. ATENOLOL [Concomitant]
     Indication: BLOOD PRESSURE INCREASED
  4. PROCARDIA [Concomitant]
     Indication: BLOOD PRESSURE INCREASED
  5. LAXATIVE [Concomitant]
     Indication: DRUG USE FOR UNKNOWN INDICATION

REACTIONS (12)
  - AZOTAEMIA [None]
  - BLOOD PRESSURE INCREASED [None]
  - CONFUSIONAL STATE [None]
  - CONSTIPATION [None]
  - DEHYDRATION [None]
  - DEPRESSION [None]
  - DYSPNOEA [None]
  - HEADACHE [None]
  - HYPERMAGNESAEMIA [None]
  - LEUKOCYTOSIS [None]
  - RENAL FAILURE ACUTE [None]
  - SPINAL COLUMN STENOSIS [None]
